FAERS Safety Report 7983316-1 (Version None)
Quarter: 2011Q4

REPORT INFORMATION
  Report Type: 
  Country: None (occurrence: None)
  Receive Date: 20111215
  Receipt Date: 20111212
  Transmission Date: 20120403
  Serious: No
  Sender: FDA-Public Use
  Company Number: US-BAYER-2011-120218

PATIENT
  Age: 41 Year
  Sex: Male
  Weight: 104 kg

DRUGS (4)
  1. ALEVE (CAPLET) [Suspect]
     Indication: EAR PAIN
  2. ZANTAC [Concomitant]
     Dosage: UNK UNK, PRN
  3. ALEVE (CAPLET) [Suspect]
     Indication: TOOTHACHE
     Route: 048
  4. ALEVE (CAPLET) [Suspect]
     Indication: NASOPHARYNGITIS

REACTIONS (1)
  - NO ADVERSE EVENT [None]
